FAERS Safety Report 9790197 (Version 1)
Quarter: 2013Q4

REPORT INFORMATION
  Report Type: Spontaneous
  Country: FR (occurrence: FR)
  Receive Date: 20131231
  Receipt Date: 20131231
  Transmission Date: 20140711
  Serious: Yes (Hospitalization)
  Sender: FDA-Public Use
  Company Number: FR-SA-2013SA134048

PATIENT
  Age: 81 Year
  Sex: Male

DRUGS (5)
  1. DAONIL [Suspect]
     Indication: TYPE 2 DIABETES MELLITUS
     Route: 048
     Dates: end: 20131210
  2. HYTACAND [Suspect]
     Indication: HYPERTENSION
     Route: 048
     Dates: end: 20131211
  3. AMLOR [Suspect]
     Indication: HYPERTENSION
     Route: 048
     Dates: end: 20131211
  4. SPIFEN [Concomitant]
  5. KLIPAL [Concomitant]

REACTIONS (2)
  - Orthostatic hypotension [Recovered/Resolved]
  - Hypoglycaemia [Recovered/Resolved]
